FAERS Safety Report 8332833-3 (Version None)
Quarter: 2012Q2

REPORT INFORMATION
  Report Type: 
  Country: None (occurrence: None)
  Receive Date: 20120503
  Receipt Date: 20120425
  Transmission Date: 20120825
  Serious: Yes (Hospitalization)
  Sender: FDA-Public Use
  Company Number: US-BAYER-2011-038950

PATIENT
  Age: 33 Year
  Sex: Female
  Weight: 54 kg

DRUGS (9)
  1. YAZ [Suspect]
     Indication: CONTRACEPTION
     Dosage: UNK
     Dates: start: 20030101
  2. MULTI-VITAMINS [Concomitant]
  3. DROSPIRENONE AND ETHINYL ESTRADIOL [Suspect]
     Dosage: UNK
     Dates: start: 20090410, end: 20090505
  4. REMERON [Concomitant]
     Dosage: 22.5 MG, UNK
     Route: 048
  5. MULTI-VITAMIN [Concomitant]
  6. YASMIN [Suspect]
     Indication: CONTRACEPTION
     Dosage: UNK
     Dates: start: 20050101, end: 20060101
  7. KLONOPIN [Concomitant]
     Dosage: UNK
     Route: 048
  8. DROSPIRENONE AND ETHINYL ESTRADIOL [Suspect]
     Indication: CONTRACEPTION
     Dosage: UNK
     Dates: start: 20070101, end: 20090101
  9. ALPRAZOLAM [Concomitant]
     Indication: ANXIETY

REACTIONS (5)
  - PULMONARY EMBOLISM [None]
  - PAIN [None]
  - PANIC ATTACK [None]
  - ANXIETY [None]
  - THROMBOSIS [None]
